FAERS Safety Report 5611062-8 (Version None)
Quarter: 2008Q1

REPORT INFORMATION
  Report Type: 
  Country: None (occurrence: None)
  Receive Date: 20080201
  Receipt Date: 20080123
  Transmission Date: 20080703
  Serious: Yes (Hospitalization)
  Sender: FDA-Public Use
  Company Number: AT-ASTRAZENECA-2008PK00211

PATIENT
  Sex: Female

DRUGS (5)
  1. SEROQUEL [Suspect]
     Route: 048
  2. SEROQUEL [Interacting]
     Route: 048
  3. TEMESTA [Interacting]
  4. DEPAKENE [Interacting]
  5. DOMINAL [Interacting]

REACTIONS (4)
  - DRUG INTERACTION [None]
  - HYPONATRAEMIA [None]
  - LEUKOPENIA [None]
  - POLYDIPSIA [None]
